FAERS Safety Report 14970037 (Version 1)
Quarter: 2018Q2

REPORT INFORMATION
  Report Type: Spontaneous
  Country: US (occurrence: US)
  Receive Date: 20180513
  Receipt Date: 20180513
  Transmission Date: 20180711
  Serious: Yes (Life-Threatening, Disabling)
  Sender: FDA-Public Use
  Company Number: None

PATIENT
  Age: 23 Year
  Sex: Male

DRUGS (1)
  1. FLUOXETINE HCL [Suspect]
     Active Substance: FLUOXETINE HYDROCHLORIDE

REACTIONS (12)
  - Drug effect decreased [None]
  - Economic problem [None]
  - Product use complaint [None]
  - Loss of employment [None]
  - Product label issue [None]
  - Product quality issue [None]
  - Anxiety [None]
  - Nightmare [None]
  - Headache [None]
  - Paranoia [None]
  - Dyspepsia [None]
  - Emotional disorder [None]

NARRATIVE: CASE EVENT DATE: 20171129
